FAERS Safety Report 11368834 (Version 1)
Quarter: 2015Q3

REPORT INFORMATION
  Report Type: Spontaneous
  Country: US (occurrence: None)
  Receive Date: 20150811
  Receipt Date: 20150811
  Transmission Date: 20151125
  Serious: Yes (Life-Threatening)
  Sender: FDA-Public Use
  Company Number: None

PATIENT
  Age: 58 Year
  Sex: Male
  Weight: 83.3 kg

DRUGS (1)
  1. METOPROLOL [Suspect]
     Active Substance: METOPROLOL
     Dates: start: 20150423

REACTIONS (2)
  - Cardiac arrest [None]
  - Cardio-respiratory arrest [None]

NARRATIVE: CASE EVENT DATE: 20150423
